FAERS Safety Report 5923288-4 (Version None)
Quarter: 2008Q4

REPORT INFORMATION
  Report Type: 
  Country: None (occurrence: None)
  Receive Date: 20081014
  Receipt Date: 20081002
  Transmission Date: 20090506
  Serious: Yes (Other)
  Sender: FDA-Public Use
  Company Number: 2008BI019622

PATIENT
  Age: 57 Year
  Sex: Male

DRUGS (2)
  1. TYSABRI [Suspect]
     Indication: MULTIPLE SCLEROSIS
     Dosage: 300 MG; QM; IV
     Route: 042
     Dates: start: 20070202
  2. AVONEX [Concomitant]

REACTIONS (8)
  - ACINETOBACTER INFECTION [None]
  - CULTURE TISSUE SPECIMEN POSITIVE [None]
  - ENTEROCOCCAL INFECTION [None]
  - HAEMOPHILUS INFECTION [None]
  - OSTEOMYELITIS [None]
  - SKIN BACTERIAL INFECTION [None]
  - TOE OPERATION [None]
  - ULCER [None]
